FAERS Safety Report 16057734 (Version 1)
Quarter: 2019Q1

REPORT INFORMATION
  Report Type: Spontaneous
  Country: IT (occurrence: IT)
  Receive Date: 20190311
  Receipt Date: 20190311
  Transmission Date: 20190418
  Serious: Yes (Hospitalization)
  Sender: FDA-Public Use
  Company Number: IT-BRISTOL-MYERS SQUIBB COMPANY-BMS-2019-015095

PATIENT
  Sex: Male

DRUGS (1)
  1. COUMADIN [Suspect]
     Active Substance: WARFARIN SODIUM
     Indication: THROMBOSIS
     Dosage: 5 MILLIGRAM
     Route: 048
     Dates: start: 201805, end: 20180919

REACTIONS (6)
  - Hernia [Unknown]
  - Pruritus [Unknown]
  - Arthralgia [Unknown]
  - Back pain [Unknown]
  - Limb injury [Unknown]
  - Walking disability [Unknown]

NARRATIVE: CASE EVENT DATE: 201805
